FAERS Safety Report 5647549-1 (Version None)
Quarter: 2008Q1

REPORT INFORMATION
  Report Type: 
  Country: None (occurrence: None)
  Receive Date: 20080131
  Receipt Date: 20071022
  Transmission Date: 20080703
  Serious: No
  Sender: FDA-Public Use
  Company Number: 163-21880-06120172

PATIENT
  Age: 72 Year
  Sex: Male

DRUGS (5)
  1. REVLIMID [Suspect]
     Indication: MYELODYSPLASTIC SYNDROME
     Dosage: ORAL
     Route: 048
     Dates: start: 20061031, end: 20061205
  2. ASPIRIN [Concomitant]
  3. SYNTHROID [Concomitant]
  4. CARDIZEM [Concomitant]
  5. PLAVIX [Concomitant]

REACTIONS (3)
  - DRUG INTOLERANCE [None]
  - FATIGUE [None]
  - SOMNOLENCE [None]
